FAERS Safety Report 6588132-3 (Version None)
Quarter: 2010Q1

REPORT INFORMATION
  Report Type: 
  Country: None (occurrence: None)
  Receive Date: 20100218
  Receipt Date: 20100210
  Transmission Date: 20100710
  Serious: Yes (Other)
  Sender: FDA-Public Use
  Company Number: CA-ALLERGAN-1001818US

PATIENT
  Age: 51 Year
  Sex: Male
  Weight: 58.957 kg

DRUGS (1)
  1. BOTULINUM TOXIN TYPE A [Suspect]
     Indication: MUSCLE SPASMS
     Dosage: 75 UNITS, SINGLE
     Dates: start: 20091101, end: 20091101

REACTIONS (2)
  - DYSPHAGIA [None]
  - WEIGHT DECREASED [None]
